FAERS Safety Report 16379898 (Version 2)
Quarter: 2019Q2

REPORT INFORMATION
  Report Type: Spontaneous
  Country: CA (occurrence: CA)
  Receive Date: 20190531
  Receipt Date: 20190628
  Transmission Date: 20190711
  Serious: Yes (Hospitalization)
  Sender: FDA-Public Use
  Company Number: CA-FERRINGPH-2019FE03056

PATIENT
  Age: 81 Year
  Sex: Male

DRUGS (2)
  1. FIRMAGON [Suspect]
     Active Substance: DEGARELIX ACETATE
     Indication: NEOPLASM MALIGNANT
     Dosage: 80 MG, MONTHLY
     Route: 058
     Dates: end: 20181004
  2. FIRMAGON [Suspect]
     Active Substance: DEGARELIX ACETATE
     Indication: PRODUCT USE IN UNAPPROVED INDICATION

REACTIONS (4)
  - Blood pressure abnormal [Unknown]
  - Decreased appetite [Unknown]
  - Insomnia [Unknown]
  - Palpitations [Unknown]
